FAERS Safety Report 11232200 (Version 1)
Quarter: 2015Q3

REPORT INFORMATION
  Report Type: Spontaneous
  Country: CH (occurrence: NO)
  Receive Date: 20150701
  Receipt Date: 20150701
  Transmission Date: 20151125
  Serious: Yes (Other)
  Sender: FDA-Public Use
  Company Number: CH-LPDUSPRD-20150503

PATIENT
  Age: 31 Year
  Sex: Female

DRUGS (1)
  1. VENOFER [Suspect]
     Active Substance: IRON SUCROSE
     Dosage: 200 MG
     Route: 041
     Dates: start: 20150602, end: 20150602

REACTIONS (7)
  - Nausea [Unknown]
  - Pallor [Unknown]
  - Cyanosis [Unknown]
  - Dyspnoea [Unknown]
  - Malaise [Unknown]
  - Exposure during pregnancy [Unknown]
  - Loss of consciousness [Unknown]

NARRATIVE: CASE EVENT DATE: 20150602
